FAERS Safety Report 16420812 (Version 4)
Quarter: 2023Q1

REPORT INFORMATION
  Report Type: Report from Study
  Country: CA (occurrence: CA)
  Receive Date: 20190612
  Receipt Date: 20230320
  Transmission Date: 20230417
  Serious: Yes (Other)
  Sender: FDA-Public Use
  Company Number: CA-JNJFOC-20190614647

PATIENT
  Age: 10 Year
  Sex: Female
  Weight: 44.6 kg

DRUGS (4)
  1. REMICADE [Suspect]
     Active Substance: INFLIXIMAB
     Indication: Crohn^s disease
     Route: 041
  2. REMICADE [Suspect]
     Active Substance: INFLIXIMAB
     Dosage: THERAPY START DATE WAS ALSO REPORTED AS 09-OCT-2018
     Route: 041
     Dates: start: 20180730
  3. REMICADE [Suspect]
     Active Substance: INFLIXIMAB
     Dosage: ON 17-NOV-2020, THE PATIENT RECEIVED 17TH 400 MG OF INFLIXIMAB RECOMBINANT
     Route: 041
  4. REMICADE [Suspect]
     Active Substance: INFLIXIMAB
     Dosage: DOSE DECREASED
     Route: 041

REACTIONS (2)
  - Crohn^s disease [Not Recovered/Not Resolved]
  - Off label use [Unknown]

NARRATIVE: CASE EVENT DATE: 20180730
